FAERS Safety Report 9245291 (Version 3)
Quarter: 2013Q3

REPORT INFORMATION
  Report Type: Report from Study
  Country: BR (occurrence: BR)
  Receive Date: 20130422
  Receipt Date: 20130819
  Transmission Date: 20140515
  Serious: Yes (Other)
  Sender: FDA-Public Use
  Company Number: PHHY2013BR037873

PATIENT
  Age: 70 Year
  Sex: Female

DRUGS (10)
  1. GALVUS [Suspect]
     Indication: DIABETES MELLITUS
     Dosage: 2 DF, (50 MG) DAILY
     Route: 048
  2. GALVUS [Suspect]
     Dosage: UNK UKN, (50 MG)
  3. DIOVAN AMLO FIX [Suspect]
     Indication: HYPERTENSION
     Dosage: 1 DF, (320/5 MG) DAILY
     Route: 048
     Dates: end: 20121219
  4. DIOVAN AMLO FIX [Suspect]
     Dosage: UNK UKN, (320/5 MG)
  5. PAMELOR [Suspect]
     Dosage: 1 DF, DAILY
     Route: 048
  6. OMEPRAZOL [Suspect]
     Indication: GASTRITIS
     Dosage: 2 DF, IN FASTING
     Route: 048
  7. SIMVASTATIN [Suspect]
     Indication: CARDIAC DISORDER
     Dosage: 1 DF, AT NIGHT
     Route: 048
  8. DAONIL [Suspect]
  9. DIPYRONE [Suspect]
     Indication: HEADACHE
     Dosage: 500 MG, ONCE OR TWICE DAILY
     Route: 048
     Dates: start: 201304
  10. LEXOTAN [Suspect]
     Indication: FEELING OF RELAXATION
     Dosage: 3 MG, 2 OR 3 TABLETS
     Route: 048

REACTIONS (12)
  - Diabetes mellitus [Unknown]
  - Arrhythmia [Recovered/Resolved]
  - Retinal injury [Not Recovered/Not Resolved]
  - Cataract [Recovered/Resolved]
  - Labyrinthitis [Not Recovered/Not Resolved]
  - Gastritis [Not Recovered/Not Resolved]
  - Hypoaesthesia [Not Recovered/Not Resolved]
  - Nervousness [Not Recovered/Not Resolved]
  - Headache [Recovered/Resolved]
  - Blood glucose increased [Recovered/Resolved]
  - Blood pressure decreased [Recovered/Resolved]
  - Blood pressure increased [Not Recovered/Not Resolved]
